FAERS Safety Report 11071910 (Version 1)
Quarter: 2015Q2

REPORT INFORMATION
  Report Type: Spontaneous
  Country: CH (occurrence: None)
  Receive Date: 20150424
  Receipt Date: 20150424
  Transmission Date: 20150821
  Serious: Yes (Hospitalization)
  Sender: FDA-Public Use
  Company Number: 20150220

PATIENT
  Age: 14 Year
  Sex: Female

DRUGS (3)
  1. VENOFER [Suspect]
     Active Substance: IRON SUCROSE
     Indication: IRON DEFICIENCY ANAEMIA
     Dosage: 150 MG, 1 TOTAL INTRAVENOUS DRIP
     Route: 041
     Dates: start: 20141014, end: 20141014
  2. TAVEGL INJECTIONSLOESUNG (CLEMASTINE FUMARATE) [Concomitant]
  3. PERFALGAN [Concomitant]
     Active Substance: ACETAMINOPHEN

REACTIONS (6)
  - Injection site extravasation [None]
  - Injection site haematoma [None]
  - Injection site oedema [None]
  - Injection site discolouration [None]
  - Injection site pain [None]
  - Injection site erythema [None]

NARRATIVE: CASE EVENT DATE: 20141014
